FAERS Safety Report 7793230-2 (Version None)
Quarter: 2011Q4

REPORT INFORMATION
  Report Type: 
  Country: None (occurrence: None)
  Receive Date: 20111003
  Receipt Date: 20111003
  Transmission Date: 20120403
  Serious: Yes (Life-Threatening)
  Sender: FDA-Public Use
  Company Number: PL-BAYER-2011-093453

PATIENT
  Age: 66 Year
  Sex: Male
  Weight: 102 kg

DRUGS (1)
  1. GADAVIST [Suspect]
     Indication: DIAGNOSTIC PROCEDURE
     Dosage: 15 ML, ONCE
     Route: 042
     Dates: start: 20110913, end: 20110913

REACTIONS (1)
  - NAUSEA [None]
